FAERS Safety Report 4312900-1 (Version None)
Quarter: 2004Q1

REPORT INFORMATION
  Report Type: 
  Country: None (occurrence: None)
  Receive Date: 20040302
  Receipt Date: 20031121
  Transmission Date: 20041129
  Serious: No
  Sender: FDA-Public Use
  Company Number: WAES 0311USA02612

PATIENT
  Age: 70 Year
  Sex: Male

DRUGS (1)
  1. CANCIDAS [Suspect]
     Indication: BRONCHOPULMONARY ASPERGILLOSIS
     Dosage: 30 MG/DAILY/IV
     Route: 042
     Dates: start: 20031120, end: 20031207

REACTIONS (2)
  - CHILLS [None]
  - PYREXIA [None]
